FAERS Safety Report 14010622 (Version 2)
Quarter: 2017Q4

REPORT INFORMATION
  Report Type: Report from Study
  Country: None (occurrence: US)
  Receive Date: 20170926
  Receipt Date: 20171109
  Transmission Date: 20180321
  Serious: Yes (Hospitalization, Other)
  Sender: FDA-Public Use
  Company Number: US-ABBVIE-17K-163-2107358-00

PATIENT
  Sex: Female

DRUGS (3)
  1. ACYCLOVIR. [Suspect]
     Active Substance: ACYCLOVIR
     Indication: ENCEPHALITIS VIRAL
     Route: 065
  2. IMURAN [Concomitant]
     Active Substance: AZATHIOPRINE
     Indication: COLITIS ULCERATIVE
     Dates: end: 201709
  3. HUMIRA [Suspect]
     Active Substance: ADALIMUMAB
     Indication: COLITIS ULCERATIVE
     Route: 058
     Dates: start: 201706, end: 201708

REACTIONS (9)
  - Balance disorder [Recovering/Resolving]
  - Nausea [Unknown]
  - Cognitive disorder [Recovering/Resolving]
  - Encephalitis viral [Recovering/Resolving]
  - Ocular hyperaemia [Not Recovered/Not Resolved]
  - Seizure [Recovering/Resolving]
  - Aphasia [Recovered/Resolved]
  - Diarrhoea [Unknown]
  - Vomiting [Recovering/Resolving]

NARRATIVE: CASE EVENT DATE: 2017
